FAERS Safety Report 8359988-9 (Version None)
Quarter: 2012Q2

REPORT INFORMATION
  Report Type: 
  Country: None (occurrence: None)
  Receive Date: 20120515
  Receipt Date: 20120509
  Transmission Date: 20120825
  Serious: Yes (Death, Other)
  Sender: FDA-Public Use
  Company Number: PHHY2012US040720

PATIENT
  Age: 56 Year
  Sex: Male

DRUGS (5)
  1. MELPHALAN HYDROCHLORIDE [Concomitant]
     Dosage: 140 MG/M2
  2. MYCOPHENOLATE MOFETIL [Suspect]
     Indication: PROPHYLAXIS AGAINST GRAFT VERSUS HOST DISEASE
     Dosage: 1000 MG, TID
  3. FLUDARABINE PHOSPHATE [Concomitant]
     Dosage: 160 MG/M2
  4. ALEMTUZUMAB [Concomitant]
     Dosage: 80 MG, UNK
  5. CYCLOSPORINE [Suspect]
     Indication: PROPHYLAXIS AGAINST GRAFT VERSUS HOST DISEASE
     Dosage: UNK UKN, UNK

REACTIONS (3)
  - ADENOVIRUS INFECTION [None]
  - ENGRAFT FAILURE [None]
  - GENERAL PHYSICAL HEALTH DETERIORATION [None]
